FAERS Safety Report 7406035-9 (Version None)
Quarter: 2011Q2

REPORT INFORMATION
  Report Type: 
  Country: None (occurrence: None)
  Receive Date: 20110411
  Receipt Date: 20110331
  Transmission Date: 20111010
  Serious: Yes (Other)
  Sender: FDA-Public Use
  Company Number: A0918765A

PATIENT
  Age: 57 Year
  Sex: Male
  Weight: 79.4 kg

DRUGS (10)
  1. ZANAMIVIR [Suspect]
     Indication: H1N1 INFLUENZA
     Route: 042
     Dates: start: 20110223, end: 20110228
  2. CEFTRIAXONE [Concomitant]
  3. METHYLPREDNISOLONE [Concomitant]
     Dosage: 40MG FOUR TIMES PER DAY
     Route: 042
     Dates: start: 20110226, end: 20110301
  4. VANCOMYCIN [Concomitant]
  5. PIPERACILLIN AND TAZOBACTAM [Concomitant]
  6. AZITHROMYCIN [Concomitant]
  7. NOREPINEPHRINE BITARTRATE [Concomitant]
  8. METHYLPREDNISOLONE [Concomitant]
     Indication: ACUTE RESPIRATORY DISTRESS SYNDROME
     Dosage: 60MG FOUR TIMES PER DAY
     Route: 042
     Dates: start: 20110222, end: 20110226
  9. PREDNISONE TAPER [Concomitant]
     Indication: ACUTE RESPIRATORY DISTRESS SYNDROME
     Route: 048
     Dates: start: 20110301, end: 20110305
  10. OSELTAMIVIR [Concomitant]
     Dosage: 150MG TWICE PER DAY
     Dates: start: 20110208

REACTIONS (1)
  - NEUTROPENIA [None]
